FAERS Safety Report 11081959 (Version 2)
Quarter: 2016Q1

REPORT INFORMATION
  Report Type: Spontaneous
  Country: JP (occurrence: JP)
  Receive Date: 20150501
  Receipt Date: 20160324
  Transmission Date: 20160525
  Serious: Yes (Death, Life-Threatening, Hospitalization)
  Sender: FDA-Public Use
  Company Number: JP-NOVOPROD-445981

PATIENT
  Age: 79 Year
  Sex: Male
  Weight: 42 kg

DRUGS (9)
  1. NOVORAPID [Suspect]
     Active Substance: INSULIN ASPART
     Dosage: UNK
     Route: 058
     Dates: start: 20140912, end: 20141021
  2. APIDRA [Suspect]
     Active Substance: INSULIN GLULISINE
     Dosage: 10 U, QD (4-3-3)
     Route: 058
     Dates: start: 20140815, end: 20140901
  3. TRESIBA CHU [Suspect]
     Active Substance: INSULIN DEGLUDEC
     Dosage: 0.5 U, QD  (BEFORE BEDTIME)
     Route: 058
     Dates: start: 20140901, end: 20140912
  4. NOVORAPID [Suspect]
     Active Substance: INSULIN ASPART
     Indication: FULMINANT TYPE 1 DIABETES MELLITUS
     Dosage: 11 U, QD
     Route: 058
     Dates: start: 20140901
  5. TRESIBA CHU [Suspect]
     Active Substance: INSULIN DEGLUDEC
     Dosage: 8 U, QD (MORNING)
     Route: 058
     Dates: start: 20140802, end: 20140815
  6. TRESIBA CHU [Suspect]
     Active Substance: INSULIN DEGLUDEC
     Indication: FULMINANT TYPE 1 DIABETES MELLITUS
     Dosage: UNK
     Route: 058
     Dates: start: 20130624
  7. APIDRA [Suspect]
     Active Substance: INSULIN GLULISINE
     Indication: FULMINANT TYPE 1 DIABETES MELLITUS
     Dosage: TID
     Route: 058
     Dates: start: 20121015
  8. APIDRA [Suspect]
     Active Substance: INSULIN GLULISINE
     Dosage: 12 U, QD (6-3-3)
     Route: 058
     Dates: start: 20140802, end: 20140814
  9. HUMULIN R [Suspect]
     Active Substance: INSULIN HUMAN
     Indication: FULMINANT TYPE 1 DIABETES MELLITUS
     Dosage: UNK
     Route: 058
     Dates: start: 20140912, end: 20141021

REACTIONS (3)
  - Hypoglycaemic encephalopathy [Not Recovered/Not Resolved]
  - General physical health deterioration [Fatal]
  - Pneumonia [Fatal]

NARRATIVE: CASE EVENT DATE: 20140802
